FAERS Safety Report 21878609 (Version 1)
Quarter: 2023Q1

REPORT INFORMATION
  Report Type: Spontaneous
  Country: BR (occurrence: BR)
  Receive Date: 20230118
  Receipt Date: 20230118
  Transmission Date: 20230417
  Serious: Yes (Other)
  Sender: FDA-Public Use
  Company Number: BR-AMGEN-BRASP2023005295

PATIENT
  Age: 6 Year
  Sex: Male
  Weight: 23 kg

DRUGS (1)
  1. BLINCYTO [Suspect]
     Active Substance: BLINATUMOMAB
     Indication: Acute leukaemia
     Dosage: 5 MICROGRAM/KILOGRAM, QD
     Route: 040
     Dates: start: 20230104

REACTIONS (1)
  - Vascular device occlusion [Unknown]

NARRATIVE: CASE EVENT DATE: 20230110
